FAERS Safety Report 7033282-0 (Version None)
Quarter: 2010Q4

REPORT INFORMATION
  Report Type: 
  Country: None (occurrence: None)
  Receive Date: 20101007
  Receipt Date: 20100929
  Transmission Date: 20110411
  Serious: Yes (Hospitalization)
  Sender: FDA-Public Use
  Company Number: A0885074A

PATIENT
  Sex: Female

DRUGS (2)
  1. SERETIDE [Suspect]
     Indication: PRODUCT USED FOR UNKNOWN INDICATION
     Route: 065
  2. UNSPECIFIED MEDICATION [Concomitant]

REACTIONS (1)
  - PULMONARY OEDEMA [None]
